FAERS Safety Report 9990765 (Version 3)
Quarter: 2014Q3

REPORT INFORMATION
  Report Type: Spontaneous
  Country: US (occurrence: US)
  Receive Date: 20140310
  Receipt Date: 20140730
  Transmission Date: 20150326
  Serious: Yes (Hospitalization)
  Sender: FDA-Public Use
  Company Number: US-PFIZER INC-2014064684

PATIENT
  Age: 71 Year
  Sex: Female

DRUGS (2)
  1. INLYTA [Suspect]
     Active Substance: AXITINIB
     Dosage: 2 MG (2 TABLETS), 2X/DAY
  2. INLYTA [Suspect]
     Active Substance: AXITINIB
     Indication: RENAL CELL CARCINOMA
     Dosage: 3 MG (3 TABLET), 2X/DAY
     Dates: start: 20140211

REACTIONS (6)
  - Speech disorder [Unknown]
  - Diarrhoea [Unknown]
  - Decreased appetite [Unknown]
  - Weight decreased [Unknown]
  - Influenza like illness [Unknown]
  - Dehydration [Unknown]

NARRATIVE: CASE EVENT DATE: 201402
